FAERS Safety Report 7670248-1 (Version None)
Quarter: 2011Q3

REPORT INFORMATION
  Report Type: 
  Country: None (occurrence: None)
  Receive Date: 20110809
  Receipt Date: 20110804
  Transmission Date: 20111222
  Serious: Yes (Hospitalization, Other)
  Sender: FDA-Public Use
  Company Number: US-BRISTOL-MYERS SQUIBB COMPANY-15851777

PATIENT
  Age: 71 Year
  Sex: Female
  Weight: 80 kg

DRUGS (7)
  1. CIPROFLOXACIN HCL [Concomitant]
  2. GLUCOPHAGE [Concomitant]
  3. IPILIMUMAB [Suspect]
     Indication: MALIGNANT MELANOMA
     Dosage: NO OF COURSE=2,LAST DOSE ADMINISTERD ON 29JUN2011.90 MIN DAY 1 Q12 WEEKS
     Route: 042
     Dates: start: 20110517
  4. PAMELOR [Concomitant]
  5. NOVOLOG [Concomitant]
     Dosage: 1 DF= 100UNIT/ML
  6. IMODIUM [Concomitant]
  7. LIPITOR [Concomitant]

REACTIONS (9)
  - BLOOD ALKALINE PHOSPHATASE INCREASED [None]
  - HYPERGLYCAEMIA [None]
  - URINARY TRACT INFECTION [None]
  - BLOOD BILIRUBIN INCREASED [None]
  - ENTERITIS INFECTIOUS [None]
  - AUTOIMMUNE HEPATITIS [None]
  - DIARRHOEA [None]
  - ALANINE AMINOTRANSFERASE INCREASED [None]
  - ASPARTATE AMINOTRANSFERASE INCREASED [None]
